FAERS Safety Report 19875063 (Version 2)
Quarter: 2021Q3

REPORT INFORMATION
  Report Type: Other
  Country: FR (occurrence: FR)
  Receive Date: 20210923
  Receipt Date: 20210924
  Transmission Date: 20211014
  Serious: Yes (Other)
  Sender: FDA-Public Use
  Company Number: FR-ROCHE-2914601

PATIENT

DRUGS (6)
  1. ENCORAFENIB [Suspect]
     Active Substance: ENCORAFENIB
     Indication: MALIGNANT MELANOMA
     Route: 065
  2. COBIMETINIB. [Suspect]
     Active Substance: COBIMETINIB
     Indication: MALIGNANT MELANOMA
     Route: 065
  3. DABRAFENIB [Suspect]
     Active Substance: DABRAFENIB
     Indication: MALIGNANT MELANOMA
     Route: 065
  4. VEMURAFENIB. [Suspect]
     Active Substance: VEMURAFENIB
     Indication: MALIGNANT MELANOMA
     Route: 065
  5. BINIMETINIB [Suspect]
     Active Substance: BINIMETINIB
     Indication: MALIGNANT MELANOMA
     Route: 065
  6. TRAMETINIB [Suspect]
     Active Substance: TRAMETINIB
     Indication: MALIGNANT MELANOMA
     Route: 065

REACTIONS (14)
  - Alopecia [Unknown]
  - Acne [Unknown]
  - Paraesthesia [Unknown]
  - Cardiac failure [Unknown]
  - Seizure [Unknown]
  - Photosensitivity reaction [Unknown]
  - Disorientation [Unknown]
  - Retinal disorder [Unknown]
  - Hyperkeratosis [Unknown]
  - Confusional state [Unknown]
  - Panniculitis [Unknown]
  - Eczema [Unknown]
  - Dysaesthesia [Unknown]
  - Arrhythmia [Unknown]
